FAERS Safety Report 24935750 (Version 1)
Quarter: 2025Q1

REPORT INFORMATION
  Report Type: Report from Study
  Country: US (occurrence: US)
  Receive Date: 20250206
  Receipt Date: 20250206
  Transmission Date: 20250408
  Serious: Yes (Other)
  Sender: EXELIXIS
  Company Number: US-EXELIXIS-CABO-24080716

PATIENT
  Sex: Male

DRUGS (9)
  1. CABOMETYX [Suspect]
     Active Substance: CABOZANTINIB S-MALATE
     Indication: Renal cancer
     Dosage: 40 MG, QD
     Route: 048
     Dates: start: 20240130
  2. CARVEDILOL [Concomitant]
     Active Substance: CARVEDILOL
  3. A-HYDROCORT [Concomitant]
     Active Substance: HYDROCORTISONE SODIUM SUCCINATE
  4. LEVOTHYROXINE [Concomitant]
     Active Substance: LEVOTHYROXINE
  5. LORAZEPAM [Concomitant]
     Active Substance: LORAZEPAM
  6. OXERVATE [Concomitant]
     Active Substance: CENEGERMIN-BKBJ
  7. PROCHLORPERAZINE [Concomitant]
     Active Substance: PROCHLORPERAZINE
  8. REFRESH CLASSIC [Concomitant]
     Active Substance: POLYVINYL ALCOHOL\POVIDONE
  9. RESTASIS [Concomitant]
     Active Substance: CYCLOSPORINE

REACTIONS (9)
  - Thrombosis [Unknown]
  - Dysphonia [Unknown]
  - Nausea [Recovering/Resolving]
  - Diarrhoea [Unknown]
  - Dry skin [Unknown]
  - Blood pressure increased [Unknown]
  - Fatigue [Unknown]
  - Dry eye [Unknown]
  - Skin fissures [Unknown]
